FAERS Safety Report 7637059-4 (Version None)
Quarter: 2011Q3

REPORT INFORMATION
  Report Type: 
  Country: None (occurrence: None)
  Receive Date: 20110726
  Receipt Date: 20110718
  Transmission Date: 20111222
  Serious: Yes (Other)
  Sender: FDA-Public Use
  Company Number: US-ASTRAZENECA-2009UW00206

PATIENT
  Age: 696 Month
  Sex: Male
  Weight: 140.6 kg

DRUGS (14)
  1. GEODON [Concomitant]
     Dates: start: 20020901
  2. MIRAPEX [Concomitant]
     Route: 048
     Dates: start: 20061005
  3. METHADON AMIDONE HCL TAB [Concomitant]
     Indication: PAIN
     Dates: start: 20020901
  4. METHADON AMIDONE HCL TAB [Concomitant]
     Dates: start: 20061005
  5. ZOLOFT [Concomitant]
     Dates: start: 20020916
  6. ZANAFLEX [Concomitant]
     Dates: start: 20061005
  7. SEROQUEL [Suspect]
     Indication: DEPRESSION
     Route: 048
     Dates: start: 20020916
  8. TORSEMIDE [Concomitant]
     Dosage: 20 MG TAKE 1/2 TABLET
     Route: 048
     Dates: start: 20070213
  9. SEROQUEL [Suspect]
     Route: 048
     Dates: start: 20040101, end: 20050101
  10. CLONAZEPAM [Concomitant]
     Indication: ANXIETY
     Dosage: 0.5-5MG
     Dates: start: 20020101
  11. CYMBALTA [Concomitant]
     Dates: start: 20061005
  12. VERAPAMIL [Concomitant]
     Dates: start: 20070730, end: 20080729
  13. TOPAMAX [Concomitant]
     Route: 048
     Dates: start: 20070925
  14. INDERAL LA [Concomitant]
     Indication: HYPERTENSION
     Dates: start: 20061013

REACTIONS (11)
  - DEPRESSION [None]
  - WEIGHT DECREASED [None]
  - WEIGHT INCREASED [None]
  - BLOOD PRESSURE INADEQUATELY CONTROLLED [None]
  - DIABETIC KETOACIDOSIS [None]
  - HYPERTENSION [None]
  - LEG AMPUTATION [None]
  - JOINT INJURY [None]
  - DIABETES MELLITUS INADEQUATE CONTROL [None]
  - OBESITY [None]
  - TYPE 2 DIABETES MELLITUS [None]
